FAERS Safety Report 5456522-8 (Version None)
Quarter: 2007Q3

REPORT INFORMATION
  Report Type: 
  Country: None (occurrence: None)
  Receive Date: 20070914
  Receipt Date: 20070914
  Transmission Date: 20080115
  Serious: Yes (Other)
  Sender: FDA-Public Use
  Company Number: None

PATIENT
  Sex: Female

DRUGS (2)
  1. OXYCONTIN [Suspect]
     Indication: BACK PAIN
     Dosage: 80 MG #1 AM # 1PM #60
  2. OXYCONTIN [Suspect]
     Indication: OSTEOARTHRITIS
     Dosage: 80 MG #1 AM # 1PM #60

REACTIONS (4)
  - GAIT DISTURBANCE [None]
  - HALLUCINATION [None]
  - NAUSEA [None]
  - PHARMACEUTICAL PRODUCT COMPLAINT [None]
